FAERS Safety Report 6094553-8 (Version None)
Quarter: 2009Q1

REPORT INFORMATION
  Report Type: 
  Country: None (occurrence: None)
  Receive Date: 20090226
  Receipt Date: 20090220
  Transmission Date: 20090719
  Serious: No
  Sender: FDA-Public Use
  Company Number: US-B.I. PHARMACEUTICALS,INC./RIDGEFIELD-2009-BP-02153BP

PATIENT
  Age: 85 Year
  Sex: Male

DRUGS (10)
  1. SPIRIVA [Suspect]
     Indication: CHRONIC OBSTRUCTIVE PULMONARY DISEASE
     Dosage: 18MCG
     Route: 055
     Dates: start: 20040101
  2. SPIRIVA [Suspect]
     Indication: EMPHYSEMA
  3. OMEPRAZOLE [Concomitant]
     Indication: GASTROOESOPHAGEAL REFLUX DISEASE
  4. FORADIL [Concomitant]
     Indication: EMPHYSEMA
  5. ALBUTEROL [Concomitant]
     Indication: EMPHYSEMA
  6. OXYGEN [Concomitant]
     Indication: EMPHYSEMA
  7. DIGOXIN [Concomitant]
     Indication: CARDIAC DISORDER
  8. IMODIUM [Concomitant]
     Indication: DIARRHOEA
  9. COUMADIN [Concomitant]
     Indication: BLOOD DISORDER
  10. HYDROCHLOROTHIAZIDE [Concomitant]
     Indication: POLYURIA

REACTIONS (1)
  - DRUG INEFFECTIVE [None]
